FAERS Safety Report 5533863-7 (Version None)
Quarter: 2007Q4

REPORT INFORMATION
  Report Type: 
  Country: None (occurrence: None)
  Receive Date: 20071129
  Receipt Date: 20071119
  Transmission Date: 20080405
  Serious: Yes (Hospitalization)
  Sender: FDA-Public Use
  Company Number: B0496745A

PATIENT
  Sex: 0

DRUGS (9)
  1. MELPHALAN INFUSION (GENERIC) (MELPHALAN) [Suspect]
     Indication: NEOPLASM
     Dosage: INTRAVENOUS INFUS
     Route: 042
  2. DEXAMETHASONE [Suspect]
     Dosage: 8 MG/ TWICE PER DAY
  3. GEMZAR [Suspect]
     Indication: NEOPLASM
     Dosage: INTRAVENOUS  INFUS
     Route: 042
  4. DOCETAXEL [Suspect]
     Indication: NEOPLASM
     Dosage: INTRAVENOUS INFUS
     Route: 042
  5. CARBOPLATIN [Suspect]
     Indication: NEOPLASM
     Dosage: INTRAVENOUS
     Route: 042
  6. HYDRATION THERAPY [Concomitant]
  7. LEVOFLOXACIN [Concomitant]
  8. ACYCLOVIR [Concomitant]
  9. FLUCONAZOLE [Concomitant]

REACTIONS (2)
  - DRUG TOXICITY [None]
  - ENTEROCOLITIS [None]
